FAERS Safety Report 8342864-5 (Version None)
Quarter: 2012Q2

REPORT INFORMATION
  Report Type: 
  Country: None (occurrence: None)
  Receive Date: 20120504
  Receipt Date: 20120504
  Transmission Date: 20120825
  Serious: Yes (Other)
  Sender: FDA-Public Use
  Company Number: None

PATIENT
  Age: 82 Year
  Sex: Female
  Weight: 6 kg

DRUGS (16)
  1. POTASSIUM CHLORIDE [Concomitant]
  2. ARANESP [Concomitant]
  3. FUROSEMIDE [Concomitant]
  4. COMBIVENT FOR VENTILATOR [Concomitant]
  5. ZYVOX [Suspect]
     Indication: PNEUMOTHORAX
     Dosage: ZYVOX 600MG Q12H IV
     Route: 042
     Dates: start: 20120420, end: 20120426
  6. ZYVOX [Suspect]
     Indication: BRONCHOPNEUMONIA
     Dosage: ZYVOX 600MG Q12H IV
     Route: 042
     Dates: start: 20120420, end: 20120426
  7. MESTINON [Concomitant]
  8. FLORASTOR [Concomitant]
  9. NITRO-BID [Concomitant]
  10. BACTROBAN [Concomitant]
  11. NORVASC [Concomitant]
  12. CLONIDINE HCL [Concomitant]
  13. PREVACID [Concomitant]
  14. ROCALTROL [Concomitant]
  15. ROCALTROL [Concomitant]
  16. SANTYL [Concomitant]

REACTIONS (2)
  - PSYCHOTIC DISORDER [None]
  - HALLUCINATION [None]
